FAERS Safety Report 8006914-8 (Version None)
Quarter: 2011Q4

REPORT INFORMATION
  Report Type: 
  Country: None (occurrence: None)
  Receive Date: 20111222
  Receipt Date: 20111117
  Transmission Date: 20120403
  Serious: Yes (Hospitalization)
  Sender: FDA-Public Use
  Company Number: AEGBR201100316

PATIENT
  Age: 73 Year
  Sex: Male
  Weight: 64.4 kg

DRUGS (3)
  1. IMMUNE GLOBULIN INTRAVENOUS (HUMAN) [Suspect]
     Indication: PRODUCT USED FOR UNKNOWN INDICATION
     Dosage: IV
     Route: 042
     Dates: start: 20111107, end: 20111107
  2. HYDROCORTISONE [Concomitant]
  3. CHLORPHENIRAMINE MALEATE [Concomitant]

REACTIONS (2)
  - PYREXIA [None]
  - CHEST PAIN [None]
